FAERS Safety Report 8888624 (Version 2)
Quarter: 2012Q4

REPORT INFORMATION
  Report Type: 
  Country: US (occurrence: US)
  Receive Date: 20121106
  Receipt Date: 20121214
  Transmission Date: 20130627
  Serious: Yes (Other)
  Sender: FDA-Public Use
  Company Number: US-PFIZER INC-2012272892

PATIENT
  Age: 79 Year
  Sex: Male
  Weight: 88.44 kg

DRUGS (3)
  1. TOVIAZ [Suspect]
     Indication: URINARY FREQUENCY
     Dosage: 4 mg, daily
     Dates: start: 201210
  2. METFORMIN [Concomitant]
     Indication: DIABETES
     Dosage: 850 mg, 2x/day
  3. LANTUS [Concomitant]
     Indication: DIABETES
     Dosage: 35 IU, daily

REACTIONS (2)
  - Dysuria [Unknown]
  - Pain [Unknown]
